FAERS Safety Report 18544226 (Version 6)
Quarter: 2021Q1

REPORT INFORMATION
  Report Type: Report from Study
  Country: CA (occurrence: CA)
  Receive Date: 20201125
  Receipt Date: 20210216
  Transmission Date: 20210419
  Serious: Yes (Other)
  Sender: FDA-Public Use
  Company Number: CA-IPSEN BIOPHARMACEUTICALS, INC.-2020-20345

PATIENT
  Age: 56 Year
  Sex: Male

DRUGS (4)
  1. ULORIC [Concomitant]
     Active Substance: FEBUXOSTAT
  2. SOMATULINE AUTOGEL [Suspect]
     Active Substance: LANREOTIDE ACETATE
     Indication: NEUROENDOCRINE TUMOUR
     Route: 058
     Dates: start: 20200922
  3. COLCHICINE. [Concomitant]
     Active Substance: COLCHICINE
  4. MAVIK [Concomitant]
     Active Substance: TRANDOLAPRIL

REACTIONS (14)
  - Renal impairment [Not Recovered/Not Resolved]
  - Diarrhoea [Unknown]
  - Palpitations [Recovered/Resolved]
  - Abdominal pain [Recovered/Resolved]
  - Chest discomfort [Recovered/Resolved]
  - Dry skin [Not Recovered/Not Resolved]
  - Faecaloma [Recovered/Resolved]
  - Arthralgia [Recovered/Resolved]
  - Fatigue [Recovered/Resolved]
  - Diarrhoea [Recovered/Resolved]
  - Hypertension [Not Recovered/Not Resolved]
  - Nephrolithiasis [Not Recovered/Not Resolved]
  - Arterial stent insertion [Recovered/Resolved]
  - Abdominal pain [Recovered/Resolved]

NARRATIVE: CASE EVENT DATE: 20200922
